FAERS Safety Report 23586691 (Version 2)
Quarter: 2024Q1

REPORT INFORMATION
  Report Type: Spontaneous
  Country: US (occurrence: US)
  Receive Date: 20240301
  Receipt Date: 20240313
  Transmission Date: 20240410
  Serious: No
  Sender: FDA-Public Use
  Company Number: US-002147023-NVSC2024US044489

PATIENT
  Age: 68 Year
  Sex: Female

DRUGS (1)
  1. LEQVIO [Suspect]
     Active Substance: INCLISIRAN SODIUM
     Indication: Product used for unknown indication
     Dosage: UNK
     Route: 065
     Dates: start: 20240223

REACTIONS (5)
  - Lethargy [Unknown]
  - Fatigue [Unknown]
  - Oropharyngeal pain [Unknown]
  - Pain [Unknown]
  - Blood urine present [Unknown]

NARRATIVE: CASE EVENT DATE: 20240224
